FAERS Safety Report 9753115 (Version 2)
Quarter: 2015Q3

REPORT INFORMATION
  Report Type: Spontaneous
  Country: US (occurrence: US)
  Receive Date: 20131213
  Receipt Date: 20150805
  Transmission Date: 20151125
  Serious: No
  Sender: FDA-Public Use
  Company Number: US-GILEAD-2010-0027295

PATIENT
  Age: 67 Year
  Sex: Female

DRUGS (13)
  1. HYDROCHLOROTHIAZIDE/TRIAMTERENE [Concomitant]
  2. LASIX [Concomitant]
     Active Substance: FUROSEMIDE
  3. CALCIUM [Concomitant]
     Active Substance: CALCIUM
  4. LETAIRIS [Suspect]
     Active Substance: AMBRISENTAN
     Indication: PULMONARY ARTERIAL HYPERTENSION
     Route: 048
     Dates: start: 20100217
  5. FOLIC ACID. [Concomitant]
     Active Substance: FOLIC ACID
  6. COUMADIN [Concomitant]
     Active Substance: WARFARIN SODIUM
  7. PULMICORT TURBUHALER [Concomitant]
     Active Substance: BUDESONIDE
  8. VITAMIN B12 [Concomitant]
     Active Substance: CYANOCOBALAMIN
  9. POTASSIUM [Concomitant]
     Active Substance: POTASSIUM
  10. LOPRESSOR [Concomitant]
     Active Substance: METOPROLOL TARTRATE
  11. PREDNISONE. [Concomitant]
     Active Substance: PREDNISONE
  12. NEXIUM [Concomitant]
     Active Substance: ESOMEPRAZOLE MAGNESIUM
  13. VITAMIN B6 [Concomitant]
     Active Substance: PYRIDOXINE HYDROCHLORIDE

REACTIONS (2)
  - Dyspnoea [Not Recovered/Not Resolved]
  - Oedema peripheral [Not Recovered/Not Resolved]

NARRATIVE: CASE EVENT DATE: 20100221
